FAERS Safety Report 9471259 (Version 1)
Quarter: 2013Q3

REPORT INFORMATION
  Report Type: Spontaneous
  Country: US (occurrence: US)
  Receive Date: 20130822
  Receipt Date: 20130822
  Transmission Date: 20140515
  Serious: Yes (Hospitalization)
  Sender: FDA-Public Use
  Company Number: US-BAYER-2013-101135

PATIENT
  Age: 49 Year
  Sex: Female

DRUGS (5)
  1. YAZ [Suspect]
  2. SIMVASTATIN [Concomitant]
     Dosage: UNK
     Dates: start: 20110819
  3. LEVOTHYROXINE [Concomitant]
     Dosage: UNK
     Dates: start: 20110819
  4. HYDROQUINONE [Concomitant]
  5. METOPROLOL [Concomitant]

REACTIONS (1)
  - Deep vein thrombosis [Recovering/Resolving]
